FAERS Safety Report 9074360 (Version 1)
Quarter: 2013Q1

REPORT INFORMATION
  Report Type: Report from Study
  Country: US (occurrence: US)
  Receive Date: 20130128
  Receipt Date: 20130128
  Transmission Date: 20140127
  Serious: No
  Sender: FDA-Public Use
  Company Number: US-ABBOTT-12P-163-0903933-00

PATIENT
  Age: 55 Year
  Sex: Female
  Weight: 68.1 kg

DRUGS (10)
  1. HUMIRA 40 MG/ 0.8 ML PRE-FILLED SYRINGE [Suspect]
     Indication: RHEUMATOID ARTHRITIS
     Dates: start: 2009
  2. METHOTREXATE [Concomitant]
     Indication: RHEUMATOID ARTHRITIS
  3. GABAPENTIN [Concomitant]
     Indication: FIBROMYALGIA
  4. PRAVASTATIN [Concomitant]
     Indication: BLOOD CHOLESTEROL INCREASED
  5. LOSARTAN [Concomitant]
     Indication: HYPERTENSION
  6. FOLIC ACID [Concomitant]
     Indication: RHEUMATOID ARTHRITIS
  7. VITAMIN D3 [Concomitant]
     Indication: HYPOVITAMINOSIS
  8. CALCIUM WITH VITAMIN D [Concomitant]
     Indication: MINERAL SUPPLEMENTATION
  9. MILK THISTLE [Concomitant]
     Indication: VITAMIN SUPPLEMENTATION
  10. VITAMIN C [Concomitant]
     Indication: VITAMIN SUPPLEMENTATION

REACTIONS (2)
  - Thirst [Not Recovered/Not Resolved]
  - Injection site pain [Not Recovered/Not Resolved]
